FAERS Safety Report 17875933 (Version 2)
Quarter: 2020Q2

REPORT INFORMATION
  Report Type: Spontaneous
  Country: BR (occurrence: BR)
  Receive Date: 20200609
  Receipt Date: 20200626
  Transmission Date: 20200714
  Serious: Yes (Other)
  Sender: FDA-Public Use
  Company Number: BR-TORRENT-00005354

PATIENT
  Age: 37 Year
  Sex: Female
  Weight: 70 kg

DRUGS (1)
  1. VENLIFT OD [Suspect]
     Active Substance: VENLAFAXINE HYDROCHLORIDE
     Indication: MENOPAUSAL SYMPTOMS
     Dosage: 2 CAPSULE DAILY, PROLONGED RELEASE CAPSULE
     Route: 048
     Dates: start: 2020

REACTIONS (5)
  - Product packaging difficult to open [Unknown]
  - Off label use [Unknown]
  - Oophorectomy [Unknown]
  - Therapy change [Unknown]
  - Urinary tract infection bacterial [Unknown]

NARRATIVE: CASE EVENT DATE: 20190313
